FAERS Safety Report 6146344-7 (Version None)
Quarter: 2009Q2

REPORT INFORMATION
  Report Type: 
  Country: None (occurrence: None)
  Receive Date: 20090407
  Receipt Date: 20090331
  Transmission Date: 20091009
  Serious: Yes (Life-Threatening, Hospitalization, Disabling, Other)
  Sender: FDA-Public Use
  Company Number: JP-PFIZER INC-2009156835

PATIENT

DRUGS (11)
  1. SUNITINIB MALATE [Suspect]
     Indication: RENAL CELL CARCINOMA
     Dosage: 50 MG, 1X/DAY
     Route: 048
     Dates: start: 20081106
  2. ZOMETA [Suspect]
     Dosage: UNK
     Route: 042
     Dates: start: 20081113, end: 20081204
  3. NORVASC [Concomitant]
     Dosage: UNK
     Route: 048
  4. BLOPRESS [Concomitant]
     Dosage: UNK
     Route: 048
  5. URSO 250 [Concomitant]
     Dosage: UNK
     Route: 048
  6. STRONG NEO-MINOPHAGEN C [Concomitant]
     Dosage: UNK
     Route: 042
     Dates: start: 20081209
  7. VOLTAREN [Concomitant]
     Dosage: UNK
     Route: 054
     Dates: start: 20081116, end: 20081205
  8. UREPEARL [Concomitant]
     Dosage: UNK
     Route: 062
     Dates: start: 20081121, end: 20081211
  9. GASTER [Concomitant]
     Dosage: UNK
     Route: 048
  10. GLYCYRON [Concomitant]
     Dosage: UNK
     Route: 048
     Dates: start: 20090105
  11. TATHION [Concomitant]
     Route: 042

REACTIONS (7)
  - AORTIC DISSECTION [None]
  - DYSGEUSIA [None]
  - HEPATIC FUNCTION ABNORMAL [None]
  - PALMAR-PLANTAR ERYTHRODYSAESTHESIA SYNDROME [None]
  - PANCREATIC DISORDER [None]
  - PLATELET COUNT DECREASED [None]
  - PYREXIA [None]
